FAERS Safety Report 13672592 (Version 1)
Quarter: 2017Q2

REPORT INFORMATION
  Report Type: Spontaneous
  Country: US (occurrence: US)
  Receive Date: 20170620
  Receipt Date: 20170620
  Transmission Date: 20170830
  Serious: Yes (Hospitalization, Disabling, Other)
  Sender: FDA-Public Use
  Company Number: None

PATIENT
  Age: 51 Year
  Sex: Female
  Weight: 60.75 kg

DRUGS (1)
  1. ATIVAN [Suspect]
     Active Substance: LORAZEPAM
     Indication: INSOMNIA
     Dosage: ?          QUANTITY:1 TABLET(S);?
     Route: 048

REACTIONS (11)
  - Withdrawal syndrome [None]
  - Burning sensation [None]
  - Suicidal ideation [None]
  - Hyperacusis [None]
  - Mental disorder [None]
  - Drug tolerance [None]
  - Bone pain [None]
  - Myalgia [None]
  - Photophobia [None]
  - Head discomfort [None]
  - Disturbance in attention [None]

NARRATIVE: CASE EVENT DATE: 20160214
